FAERS Safety Report 8494324-9 (Version None)
Quarter: 2012Q2

REPORT INFORMATION
  Report Type: 
  Country: None (occurrence: None)
  Receive Date: 20120405
  Receipt Date: 20090120
  Transmission Date: 20120825
  Serious: Yes (Other)
  Sender: FDA-Public Use
  Company Number: PHEH2009US00576

PATIENT
  Age: 82 Year
  Sex: Female
  Weight: 74.4 kg

DRUGS (5)
  1. LASIX [Concomitant]
  2. AMLODIPINE [Concomitant]
  3. TOPROL-XL [Concomitant]
  4. FOLATE SODIUM (FOLATE SODIUM) [Concomitant]
  5. RECLAST [Suspect]
     Indication: OSTEOPOROSIS
     Dosage: 5 MG, ONCE YEARLY, INTRAVENOUS
     Route: 042
     Dates: start: 20081205, end: 20081205

REACTIONS (6)
  - OCULAR HYPERAEMIA [None]
  - EYELID OEDEMA [None]
  - EYE PAIN [None]
  - IRITIS [None]
  - CONJUNCTIVAL OEDEMA [None]
  - VISION BLURRED [None]
